FAERS Safety Report 8121647-5 (Version None)
Quarter: 2012Q1

REPORT INFORMATION
  Report Type: 
  Country: None (occurrence: None)
  Receive Date: 20120208
  Receipt Date: 20120208
  Transmission Date: 20120608
  Serious: Yes (Life-Threatening, Hospitalization, Other)
  Sender: FDA-Public Use
  Company Number: None

PATIENT
  Age: 31 Year
  Sex: Female
  Weight: 73.935 kg

DRUGS (1)
  1. CELEXA [Suspect]
     Dosage: 80 MG
     Route: 048

REACTIONS (10)
  - INSOMNIA [None]
  - TACHYCARDIA [None]
  - TREMOR [None]
  - VISUAL IMPAIRMENT [None]
  - MOTOR DYSFUNCTION [None]
  - WEIGHT DECREASED [None]
  - LOSS OF CONTROL OF LEGS [None]
  - GAIT DISTURBANCE [None]
  - DISABILITY [None]
  - ANXIETY [None]
